FAERS Safety Report 7391587-8 (Version None)
Quarter: 2011Q2

REPORT INFORMATION
  Report Type: 
  Country: None (occurrence: None)
  Receive Date: 20110404
  Receipt Date: 20110330
  Transmission Date: 20111010
  Serious: Yes (Life-Threatening, Other)
  Sender: FDA-Public Use
  Company Number: PHHY2010BR79785

PATIENT
  Sex: Male

DRUGS (2)
  1. EXELON [Suspect]
     Indication: DEMENTIA ALZHEIMER'S TYPE
     Dosage: 3.5 ML, BID
     Route: 048
     Dates: end: 20101120
  2. EXELON [Suspect]
     Dosage: 1 DF, BID
     Route: 048
     Dates: start: 20101121

REACTIONS (13)
  - INSOMNIA [None]
  - ABDOMINAL PAIN [None]
  - VOMITING [None]
  - TREMOR [None]
  - DECREASED APPETITE [None]
  - ASTHENIA [None]
  - NAUSEA [None]
  - DRY MOUTH [None]
  - DIZZINESS [None]
  - DYSSTASIA [None]
  - AGEUSIA [None]
  - FEAR OF DEATH [None]
  - HYPERHIDROSIS [None]
